FAERS Safety Report 12980769 (Version 1)
Quarter: 2016Q4

REPORT INFORMATION
  Report Type: Spontaneous
  Country: US (occurrence: US)
  Receive Date: 20161128
  Receipt Date: 20161128
  Transmission Date: 20170207
  Serious: No
  Sender: FDA-Public Use
  Company Number: US-PFIZER INC-2016545917

PATIENT
  Sex: Female

DRUGS (1)
  1. XELJANZ [Suspect]
     Active Substance: TOFACITINIB CITRATE
     Dosage: 10 MG, 2X/DAY
     Route: 048

REACTIONS (12)
  - Nervousness [Unknown]
  - Fatigue [Unknown]
  - Hot flush [Unknown]
  - Product use issue [Unknown]
  - Musculoskeletal stiffness [Unknown]
  - Back pain [Unknown]
  - Joint swelling [Unknown]
  - Anxiety [Unknown]
  - Weight increased [Unknown]
  - Arthralgia [Unknown]
  - Insomnia [Unknown]
  - Malaise [Unknown]
